FAERS Safety Report 5397384-7 (Version None)
Quarter: 2007Q3

REPORT INFORMATION
  Report Type: 
  Country: None (occurrence: None)
  Receive Date: 20070726
  Receipt Date: 20070719
  Transmission Date: 20080115
  Serious: Yes (Hospitalization, Other)
  Sender: FDA-Public Use
  Company Number: PHBS2007JP09174

PATIENT
  Age: 39 Year
  Sex: Female

DRUGS (4)
  1. LAMISIL [Suspect]
     Indication: NAIL TINEA
     Dosage: 125 MG/DAY
     Route: 048
     Dates: start: 20050526, end: 20050616
  2. ASTAT [Concomitant]
     Dates: start: 20070526
  3. ASTAT [Concomitant]
     Dates: start: 20070526
  4. ANTEBATE [Concomitant]
     Dates: start: 20070526

REACTIONS (13)
  - ARTHROPATHY [None]
  - BACK PAIN [None]
  - C-REACTIVE PROTEIN INCREASED [None]
  - ERYSIPELAS [None]
  - ERYTHEMA [None]
  - FAMILIAL MEDITERRANEAN FEVER [None]
  - PLATELET COUNT INCREASED [None]
  - PLEURISY [None]
  - PUSTULAR PSORIASIS [None]
  - PYREXIA [None]
  - RASH PUSTULAR [None]
  - SKIN EXFOLIATION [None]
  - TONGUE ERUPTION [None]
